FAERS Safety Report 8616960-9 (Version None)
Quarter: 2012Q3

REPORT INFORMATION
  Report Type: 
  Country: None (occurrence: None)
  Receive Date: 20120823
  Receipt Date: 20120813
  Transmission Date: 20120928
  Serious: No
  Sender: FDA-Public Use
  Company Number: US-009507513-1208USA006035

PATIENT

DRUGS (5)
  1. NADOLOL [Concomitant]
  2. SINGULAIR [Suspect]
     Dosage: UNK
     Route: 048
     Dates: start: 20120720
  3. OMNARIS [Suspect]
     Indication: HYPERSENSITIVITY
     Dosage: UNK
     Route: 055
     Dates: start: 20120720
  4. NASONEX [Concomitant]
     Dosage: UNK
     Route: 048
     Dates: end: 20120720
  5. SYNTHROID [Concomitant]

REACTIONS (1)
  - VISION BLURRED [None]
